FAERS Safety Report 7591659-9 (Version None)
Quarter: 2011Q3

REPORT INFORMATION
  Report Type: 
  Country: None (occurrence: None)
  Receive Date: 20110706
  Receipt Date: 20080212
  Transmission Date: 20111222
  Serious: Yes (Other)
  Sender: FDA-Public Use
  Company Number: US-BAYER-2011-006589

PATIENT
  Age: 56 Year
  Sex: Male
  Weight: 102 kg

DRUGS (17)
  1. HEPARIN [Concomitant]
     Dosage: TITRATED
     Route: 042
     Dates: start: 20040729
  2. AMICAR [Concomitant]
     Dosage: 10 MG, BOLUS
     Route: 042
     Dates: start: 20040818, end: 20040818
  3. TRASYLOL [Suspect]
     Indication: CORONARY ARTERY BYPASS
     Dosage: UNK
     Route: 042
     Dates: start: 20040817, end: 20040817
  4. INSULIN [Concomitant]
     Dosage: 23 U
     Route: 042
     Dates: start: 20040818, end: 20040818
  5. PROTAMINE SULFATE [Concomitant]
     Dosage: 500 MG
     Route: 042
     Dates: start: 20040818, end: 20040818
  6. ACETYLSALICYLIC ACID SRT [Concomitant]
     Dosage: UNK UNK, QD
     Route: 048
  7. PLAVIX [Concomitant]
     Dosage: 75 MG, QD
     Route: 048
  8. LOPRESSOR [Concomitant]
     Dosage: 5 MG
     Route: 042
     Dates: start: 20040729
  9. ZINACEF [Concomitant]
     Dosage: 1.5 G
     Route: 042
     Dates: start: 20040818, end: 20040818
  10. AMICAR [Concomitant]
     Dosage: 2 G/HOUR
     Route: 042
     Dates: start: 20040818, end: 20040818
  11. HEPARIN [Concomitant]
     Dosage: 10000 U
     Route: 042
     Dates: start: 20040818, end: 20040818
  12. METOPROLOL TARTRATE [Concomitant]
     Dosage: 50 MG, QD
  13. REOPRO [Concomitant]
     Dosage: TITRATED
     Route: 042
     Dates: start: 20040729
  14. MANNITOL [Concomitant]
     Dosage: 25 G
     Route: 042
     Dates: start: 20040818, end: 20040818
  15. LISINOPRIL [Concomitant]
     Dosage: 10 MG, QD
     Route: 048
  16. PROTONIX [Concomitant]
     Dosage: 40 MG
     Route: 042
     Dates: start: 20040729
  17. FLUOXETINE HCL [Concomitant]
     Dosage: 20 MG, QD
     Route: 048

REACTIONS (13)
  - DEPRESSION [None]
  - HYPERKALAEMIA [None]
  - ENCEPHALOPATHY [None]
  - PAIN [None]
  - PARESIS [None]
  - SEPSIS [None]
  - INJURY [None]
  - EMOTIONAL DISTRESS [None]
  - RENAL INJURY [None]
  - RENAL FAILURE CHRONIC [None]
  - METABOLIC ACIDOSIS [None]
  - RENAL FAILURE ACUTE [None]
  - ABSCESS INTESTINAL [None]
